FAERS Safety Report 25741499 (Version 1)
Quarter: 2025Q3

REPORT INFORMATION
  Report Type: Spontaneous
  Country: US (occurrence: None)
  Receive Date: 20250829
  Receipt Date: 20250829
  Transmission Date: 20251021
  Serious: Yes (Other)
  Sender: FDA-CTU
  Company Number: None

PATIENT

DRUGS (3)
  1. NEFFY [Suspect]
     Active Substance: EPINEPHRINE
     Indication: Anaphylactic reaction
     Dates: start: 20250814, end: 20250815
  2. NEFFY [Suspect]
     Active Substance: EPINEPHRINE
     Indication: Mast cell activation syndrome
  3. DEVICE [Suspect]
     Active Substance: DEVICE

REACTIONS (1)
  - Glossodynia [None]

NARRATIVE: CASE EVENT DATE: 20250814
